FAERS Safety Report 5338796-7 (Version None)
Quarter: 2007Q2

REPORT INFORMATION
  Report Type: 
  Country: None (occurrence: None)
  Receive Date: 20070328
  Receipt Date: 20060907
  Transmission Date: 20071010
  Serious: Yes (Other)
  Sender: FDA-Public Use
  Company Number: K200601154

PATIENT
  Age: 61 Year
  Sex: Female
  Weight: 112.5 kg

DRUGS (5)
  1. ALTACE [Suspect]
     Indication: HYPERTENSION
     Dosage: 5 MG, QD, ORAL
     Route: 048
     Dates: start: 20060523, end: 20060721
  2. HYDROCHLOROTHIAZIDE [Suspect]
     Indication: HYPERTENSION
     Dosage: 25 MG, QD, ORAL
     Route: 048
  3. TRIMETHOPRIM [Concomitant]
  4. MULTIVITAMINS (RETINOL, NICOTINAMIDE, RIBOFLAVIN, PANTHENOL, FOLIC ACI [Concomitant]
  5. ASPIRIN [Concomitant]

REACTIONS (7)
  - BLOOD GLUCOSE INCREASED [None]
  - DEHYDRATION [None]
  - HICCUPS [None]
  - NAUSEA [None]
  - PRURITUS [None]
  - RENAL FAILURE [None]
  - SKIN EXFOLIATION [None]
